FAERS Safety Report 8542152-8 (Version None)
Quarter: 2012Q3

REPORT INFORMATION
  Report Type: 
  Country: None (occurrence: None)
  Receive Date: 20120726
  Receipt Date: 20111221
  Transmission Date: 20120928
  Serious: No
  Sender: FDA-Public Use
  Company Number: US-ASTRAZENECA-2011SE62955

PATIENT
  Age: 48 Year
  Sex: Female
  Weight: 96.2 kg

DRUGS (14)
  1. SEROQUEL [Suspect]
     Indication: BIPOLAR DISORDER
     Route: 048
     Dates: start: 20050601
  2. LITHIUM CARBONATE [Concomitant]
     Indication: MENTAL DISORDER
     Route: 048
  3. LITHIUM CARBONATE [Concomitant]
  4. LITHIUM CARBONATE [Concomitant]
  5. SEROQUEL [Suspect]
     Indication: PSYCHOTIC DISORDER
     Route: 048
     Dates: start: 20050601
  6. SEROQUEL [Suspect]
     Route: 048
  7. THYROID TAB [Concomitant]
  8. SEROQUEL [Suspect]
     Route: 048
     Dates: start: 20060601
  9. SEROQUEL [Suspect]
     Route: 048
     Dates: start: 20060601
  10. PAXIL [Suspect]
     Indication: DEPRESSION
     Route: 048
  11. SEROQUEL [Suspect]
     Route: 048
  12. LITHIUM CARBONATE [Concomitant]
     Indication: BIPOLAR DISORDER
     Route: 048
  13. CERIVASTATIN [Concomitant]
     Indication: BLOOD CHOLESTEROL INCREASED
     Route: 048
  14. LEVOTHYROXINE SODIUM [Concomitant]
     Indication: THYROID DISORDER
     Route: 048

REACTIONS (7)
  - THYROID DISORDER [None]
  - THERAPEUTIC RESPONSE UNEXPECTED [None]
  - DIABETES MELLITUS [None]
  - THERAPEUTIC RESPONSE DECREASED [None]
  - BLOOD CHOLESTEROL INCREASED [None]
  - HEPATIC ENZYME INCREASED [None]
  - DRUG DOSE OMISSION [None]
